FAERS Safety Report 5051456-5 (Version None)
Quarter: 2006Q3

REPORT INFORMATION
  Report Type: 
  Country: None (occurrence: None)
  Receive Date: 20060710
  Receipt Date: 20060629
  Transmission Date: 20061208
  Serious: Yes (Other)
  Sender: FDA-Public Use
  Company Number: 2006075890

PATIENT
  Age: 57 Year
  Sex: Male

DRUGS (8)
  1. VIAGRA [Suspect]
     Indication: ERECTILE DYSFUNCTION
     Dosage: UNKNOWN (100MG, UNKNOWN),
  2. AVANDAMET [Concomitant]
  3. ZETIA [Concomitant]
  4. AMBIEN [Concomitant]
  5. ZOCOR [Concomitant]
  6. ACCUPRIL [Concomitant]
  7. NASONEX [Concomitant]
  8. NIASPAN [Concomitant]

REACTIONS (2)
  - BLEPHAROSPASM [None]
  - OPTIC ISCHAEMIC NEUROPATHY [None]
